FAERS Safety Report 24042321 (Version 1)
Quarter: 2024Q3

REPORT INFORMATION
  Report Type: Report from Study
  Country: US (occurrence: US)
  Receive Date: 20240702
  Receipt Date: 20240702
  Transmission Date: 20241016
  Serious: Yes (Other)
  Sender: SANDOZ
  Company Number: US-002147023-NVSC2021US206984

PATIENT
  Sex: Female
  Weight: 58.957 kg

DRUGS (5)
  1. TREPROSTINIL [Suspect]
     Active Substance: TREPROSTINIL
     Dosage: 30.5 NG/KG/MIN
     Route: 042
     Dates: start: 20210824
  2. TREPROSTINIL [Suspect]
     Active Substance: TREPROSTINIL
     Dosage: 30.5 NG/KG/ MIN
     Route: 042
     Dates: start: 20210824
  3. TREPROSTINIL [Suspect]
     Active Substance: TREPROSTINIL
     Indication: Pulmonary arterial hypertension
     Dosage: 28.5 NG/KG/MIN, CONT
     Route: 042
     Dates: start: 20210824
  4. BOSENTAN [Concomitant]
     Active Substance: BOSENTAN
     Indication: Product used for unknown indication
     Dosage: UNK
     Route: 065
  5. TADALAFIL [Concomitant]
     Active Substance: TADALAFIL
     Indication: Product used for unknown indication
     Dosage: UNK
     Route: 065

REACTIONS (5)
  - Oesophageal candidiasis [Unknown]
  - Nausea [Unknown]
  - Dyspnoea [Unknown]
  - Coronavirus infection [Unknown]
  - Abdominal discomfort [Unknown]
